FAERS Safety Report 9394762 (Version 1)
Quarter: 2013Q3

REPORT INFORMATION
  Report Type: Spontaneous
  Country: US (occurrence: US)
  Receive Date: 20130711
  Receipt Date: 20130711
  Transmission Date: 20140515
  Serious: No
  Sender: FDA-Public Use
  Company Number: US-009507513-1307USA004975

PATIENT
  Sex: Female

DRUGS (3)
  1. ASMANEX TWISTHALER [Suspect]
     Indication: BRONCHITIS
     Dosage: ONE PUFF ONCE A DAY LN THE EVENING
     Route: 048
     Dates: start: 201305
  2. VENTOLIN HFA [Concomitant]
  3. LISINOPRIL [Concomitant]
     Route: 048

REACTIONS (3)
  - Dyspnoea [Recovered/Resolved]
  - Drug dose omission [Unknown]
  - Device malfunction [Unknown]
